FAERS Safety Report 4437036-0 (Version None)
Quarter: 2004Q3

REPORT INFORMATION
  Report Type: 
  Country: None (occurrence: None)
  Receive Date: 20040830
  Receipt Date: 20040413
  Transmission Date: 20050211
  Serious: Yes (Death)
  Sender: FDA-Public Use
  Company Number: US-GLAXOSMITHKLINE-A0508248A

PATIENT
  Age: 72 Year
  Sex: Female

DRUGS (8)
  1. AVANDIA [Suspect]
     Dosage: 2MG TWICE PER DAY
     Route: 048
     Dates: start: 19991231, end: 20000828
  2. GLUCOPHAGE [Concomitant]
     Dosage: 500MG TWICE PER DAY
     Route: 048
  3. RIFAMPIN [Concomitant]
     Route: 048
  4. SULFAMETHOXAZOLE + TRIMETHOPRIM [Concomitant]
     Route: 048
  5. ALBUTEROL [Concomitant]
     Route: 055
  6. HUMULIN [Concomitant]
     Route: 058
  7. SYNTHROID [Concomitant]
     Route: 048
  8. NORVASC [Concomitant]
     Route: 048

REACTIONS (1)
  - CARDIAC FAILURE CONGESTIVE [None]
